FAERS Safety Report 7935703-5 (Version None)
Quarter: 2011Q4

REPORT INFORMATION
  Report Type: 
  Country: None (occurrence: None)
  Receive Date: 20111121
  Receipt Date: 20111111
  Transmission Date: 20120403
  Serious: Yes (Hospitalization, Other)
  Sender: FDA-Public Use
  Company Number: ADR-2011-11179

PATIENT
  Sex: Female

DRUGS (2)
  1. LIORESAL [Suspect]
     Indication: MULTIPLE SCLEROSIS
     Dosage: 444 MCG, DAILY, INTRATH
     Route: 037
  2. LIORESAL [Suspect]
     Indication: MUSCLE SPASTICITY
     Dosage: 444 MCG, DAILY, INTRATH
     Route: 037

REACTIONS (6)
  - IMPLANT SITE MASS [None]
  - IMPLANT SITE EFFUSION [None]
  - CATHETER SITE PAIN [None]
  - MEDICAL DEVICE DISCOMFORT [None]
  - HYPERSOMNIA [None]
  - IMPLANT SITE PAIN [None]
